FAERS Safety Report 7879815-3 (Version None)
Quarter: 2011Q4

REPORT INFORMATION
  Report Type: 
  Country: None (occurrence: None)
  Receive Date: 20111101
  Receipt Date: 20111026
  Transmission Date: 20120403
  Serious: Yes (Hospitalization, Other)
  Sender: FDA-Public Use
  Company Number: GB-ABBOTT-11P-167-0868588-00

PATIENT
  Sex: Female

DRUGS (1)
  1. VALPROATE SODIUM [Suspect]
     Indication: AFFECTIVE DISORDER

REACTIONS (3)
  - OFF LABEL USE [None]
  - ABDOMINAL PAIN [None]
  - PANCREATITIS ACUTE [None]
